FAERS Safety Report 17499405 (Version 1)
Quarter: 2020Q1

REPORT INFORMATION
  Report Type: Spontaneous
  Country: US (occurrence: US)
  Receive Date: 20200304
  Receipt Date: 20200304
  Transmission Date: 20200409
  Serious: No
  Sender: FDA-Public Use
  Company Number: US-PTC THERAPEUTICS, INC.-US-2019PTC001435

PATIENT
  Sex: Male
  Weight: 61.23 kg

DRUGS (2)
  1. EMFLAZA [Suspect]
     Active Substance: DEFLAZACORT
     Indication: MUSCULAR DYSTROPHY
     Dosage: 3.7 ML, ONCE SATURDAY AND SUNDAY
     Route: 048
  2. EMFLAZA [Suspect]
     Active Substance: DEFLAZACORT
     Dosage: UNK
     Dates: start: 20181122

REACTIONS (3)
  - Weight decreased [Not Recovered/Not Resolved]
  - Cushingoid [Not Recovered/Not Resolved]
  - Off label use [Unknown]
